FAERS Safety Report 19513253 (Version 5)
Quarter: 2021Q3

REPORT INFORMATION
  Report Type: Report from Study
  Country: US (occurrence: US)
  Receive Date: 20210709
  Receipt Date: 20210908
  Transmission Date: 20211014
  Serious: No
  Sender: FDA-Public Use
  Company Number: US-B.I. PHARMACEUTICALS,INC./RIDGEFIELD-2021-BI-110076

PATIENT
  Age: 74 Year
  Sex: Male

DRUGS (2)
  1. OFEV [Suspect]
     Active Substance: NINTEDANIB
     Indication: IDIOPATHIC PULMONARY FIBROSIS
  2. OFEV [Suspect]
     Active Substance: NINTEDANIB
     Indication: PULMONARY FIBROSIS
     Dosage: TAKE ONE BY MOUTH TWICE DAILY;?OFEV 150 MG TWICE DAILY
     Route: 048
     Dates: start: 20210524, end: 20210706

REACTIONS (10)
  - Decreased appetite [Unknown]
  - Dizziness [Recovered/Resolved]
  - Weight decreased [Not Recovered/Not Resolved]
  - Weight decreased [Unknown]
  - Eating disorder [Unknown]
  - Diarrhoea [Recovering/Resolving]
  - Faeces soft [Recovered/Resolved]
  - Decreased appetite [Not Recovered/Not Resolved]
  - Pulmonary function test increased [Unknown]
  - Nausea [Recovering/Resolving]

NARRATIVE: CASE EVENT DATE: 202105
